FAERS Safety Report 17176773 (Version 2)
Quarter: 2020Q1

REPORT INFORMATION
  Report Type: Spontaneous
  Country: US (occurrence: US)
  Receive Date: 20191219
  Receipt Date: 20200211
  Transmission Date: 20200409
  Serious: Yes (Hospitalization, Other)
  Sender: FDA-Public Use
  Company Number: US-SHIRE-US201943652

PATIENT
  Sex: Female
  Weight: 38.55 kg

DRUGS (2)
  1. LIALDA [Suspect]
     Active Substance: MESALAMINE
     Indication: COLITIS ULCERATIVE
     Dosage: 2.4 GRAM, 1X/DAY:QD
     Route: 050
  2. LIALDA [Suspect]
     Active Substance: MESALAMINE
     Dosage: 1.2 GRAM
     Route: 065

REACTIONS (10)
  - Road traffic accident [Unknown]
  - Pain [Unknown]
  - Product packaging difficult to open [Unknown]
  - Muscle spasms [Unknown]
  - Cerebrovascular accident [Unknown]
  - Migraine [Unknown]
  - Brain injury [Unknown]
  - Vision blurred [Unknown]
  - Eructation [Unknown]
  - Depressed mood [Unknown]
